FAERS Safety Report 6721167-6 (Version None)
Quarter: 2010Q2

REPORT INFORMATION
  Report Type: 
  Country: None (occurrence: None)
  Receive Date: 20100512
  Receipt Date: 20100505
  Transmission Date: 20101027
  Serious: Yes (Life-Threatening, Hospitalization)
  Sender: FDA-Public Use
  Company Number: US-BAYER-201021876NA

PATIENT
  Age: 70 Year
  Sex: Male
  Weight: 94 kg

DRUGS (18)
  1. LEUKINE [Suspect]
     Indication: GLIOBLASTOMA MULTIFORME
     Route: 023
     Dates: start: 20090429
  2. TEMODAR [Suspect]
     Indication: GLIOBLASTOMA MULTIFORME
     Dosage: DAY 1-5 EVERY 28 DAYS
     Route: 048
     Dates: start: 20090605, end: 20100405
  3. CDX-110 [Suspect]
     Indication: GLIOBLASTOMA MULTIFORME
     Route: 023
     Dates: start: 20090429
  4. ACYCLOVIR [Suspect]
     Indication: GLIOBLASTOMA MULTIFORME
     Dosage: TOTAL DAILY DOSE: 900 MG
     Route: 042
  5. ACYCLOVIR [Suspect]
     Dosage: DOSE REDUCED
  6. ACIPHEX [Concomitant]
  7. AVODART [Concomitant]
     Dates: start: 20091111
  8. DEXAMETHASONE [Concomitant]
     Dates: start: 20090330
  9. DEXAMETHASONE [Concomitant]
     Dates: end: 20100405
  10. ENALAPRIL MALEATE [Concomitant]
     Dates: start: 20070216
  11. FLOMAX [Concomitant]
     Dates: start: 20070226
  12. KEPPRA [Concomitant]
     Dates: start: 20090714
  13. PROZAC [Concomitant]
     Dosage: TOTAL DAILY DOSE: 60 MG
     Route: 048
  14. PROZAC [Concomitant]
     Dates: start: 20070226
  15. VERAPAMIL HYDROCHLORIDE CR [Concomitant]
     Dosage: TOTAL DAILY DOSE: 240 MG
     Route: 048
  16. VERAPAMIL HYDROCHLORIDE CR [Concomitant]
     Dates: start: 20070226
  17. ZOFRAN [Concomitant]
     Dates: start: 20090312
  18. LAMOTRIGINE [Concomitant]
     Dates: start: 20100329

REACTIONS (5)
  - BLOOD POTASSIUM DECREASED [None]
  - HAEMATOCRIT DECREASED [None]
  - HAEMOGLOBIN DECREASED [None]
  - MENTAL IMPAIRMENT [None]
  - RENAL FAILURE [None]
